FAERS Safety Report 24802829 (Version 5)
Quarter: 2025Q2

REPORT INFORMATION
  Report Type: Spontaneous
  Country: IT (occurrence: IT)
  Receive Date: 20250103
  Receipt Date: 20250531
  Transmission Date: 20250716
  Serious: Yes (Life-Threatening, Hospitalization, Other)
  Sender: AUROBINDO
  Company Number: IT-AUROBINDO-AUR-APL-2024-063651

PATIENT
  Age: 82 Year
  Sex: Male

DRUGS (5)
  1. METFORMIN [Suspect]
     Active Substance: METFORMIN HYDROCHLORIDE
     Indication: Type 2 diabetes mellitus
     Route: 065
  2. APIXABAN [Suspect]
     Active Substance: APIXABAN
     Indication: Atrial fibrillation
     Route: 065
  3. DIGOXIN [Suspect]
     Active Substance: DIGOXIN
     Indication: Atrial fibrillation
     Route: 065
  4. DIGOXIN [Suspect]
     Active Substance: DIGOXIN
     Indication: Toxicity to various agents
  5. TELMISARTAN [Concomitant]
     Active Substance: TELMISARTAN
     Indication: Atrial fibrillation
     Route: 065

REACTIONS (9)
  - Lactic acidosis [Recovering/Resolving]
  - Acute kidney injury [Recovering/Resolving]
  - Hyperkalaemia [Recovering/Resolving]
  - Overdose [Unknown]
  - Toxicity to various agents [Recovering/Resolving]
  - Poisoning [Unknown]
  - Therapeutic product effect incomplete [Unknown]
  - Vomiting [Unknown]
  - Diarrhoea [Unknown]
